FAERS Safety Report 15160193 (Version 1)
Quarter: 2018Q3

REPORT INFORMATION
  Report Type: Spontaneous
  Country: US (occurrence: US)
  Receive Date: 20180718
  Receipt Date: 20180718
  Transmission Date: 20181010
  Serious: Yes (Hospitalization)
  Sender: FDA-Public Use
  Company Number: US-ASTRAZENECA-2018SE90765

PATIENT
  Age: 58 Year
  Sex: Male
  Weight: 97.5 kg

DRUGS (6)
  1. FENOFIBRATE. [Concomitant]
     Active Substance: FENOFIBRATE
     Indication: BLOOD CHOLESTEROL ABNORMAL
     Route: 048
  2. PRO AIR ALBUTEROL [Concomitant]
     Dosage: AS REQUIRED AS REQUIRED
     Route: 055
  3. GUAIFENESIN. [Concomitant]
     Active Substance: GUAIFENESIN
     Indication: ILL-DEFINED DISORDER
     Route: 048
     Dates: start: 201704
  4. SYMBICORT [Suspect]
     Active Substance: BUDESONIDE\FORMOTEROL FUMARATE DIHYDRATE
     Indication: DYSPNOEA
     Dosage: 160/4.5 MCG TO TAKE 2 PUFFS TWICE A DAY
     Route: 055
     Dates: start: 2017
  5. ROBUTUSSIN [Concomitant]
     Indication: COUGH
     Dosage: THREE TIMES A DAY
     Route: 048
     Dates: start: 201704
  6. MILK FIZZLE [Concomitant]
     Indication: HEPATIC FUNCTION ABNORMAL
     Route: 048

REACTIONS (2)
  - Dyspnoea [Recovered/Resolved]
  - Drug dose omission [Not Recovered/Not Resolved]
